FAERS Safety Report 23368258 (Version 2)
Quarter: 2024Q1

REPORT INFORMATION
  Report Type: Report from Study
  Country: CA (occurrence: CA)
  Receive Date: 20240105
  Receipt Date: 20240222
  Transmission Date: 20240410
  Serious: Yes (Hospitalization, Other)
  Sender: FDA-Public Use
  Company Number: CA-JNJFOC-20231172320

PATIENT
  Age: 60 Year
  Sex: Female

DRUGS (3)
  1. REMICADE [Suspect]
     Active Substance: INFLIXIMAB
     Indication: Crohn^s disease
     Route: 041
     Dates: start: 20161230
  2. COVID-19 VACCINE NOS [Suspect]
     Active Substance: COVID-19 VACCINE NOS
     Indication: COVID-19 prophylaxis
     Dosage: 4TH DOSE OF COVID VACCINATION
     Route: 065
     Dates: start: 20231116
  3. MERCAPTOPURINE [Concomitant]
     Active Substance: MERCAPTOPURINE
     Indication: Product used for unknown indication
     Route: 065

REACTIONS (6)
  - Sepsis [Recovered/Resolved]
  - Crohn^s disease [Unknown]
  - Application site erythema [Unknown]
  - Eye irritation [Unknown]
  - Eye discharge [Unknown]
  - Administration site pain [Unknown]

NARRATIVE: CASE EVENT DATE: 20231116
